FAERS Safety Report 4738072-7 (Version None)
Quarter: 2005Q3

REPORT INFORMATION
  Report Type: 
  Country: None (occurrence: None)
  Receive Date: 20050809
  Receipt Date: 20050718
  Transmission Date: 20060218
  Serious: Yes (Hospitalization)
  Sender: FDA-Public Use
  Company Number: US-JNJFOC-20050606720

PATIENT
  Sex: Male
  Weight: 74.84 kg

DRUGS (2)
  1. FENTANYL [Suspect]
     Route: 062
  2. FENTANYL [Suspect]
     Route: 062

REACTIONS (3)
  - APPLICATION SITE PRURITUS [None]
  - ARTHRALGIA [None]
  - DEVICE RELATED INFECTION [None]
